FAERS Safety Report 8257551-1 (Version None)
Quarter: 2012Q2

REPORT INFORMATION
  Report Type: 
  Country: None (occurrence: None)
  Receive Date: 20120403
  Receipt Date: 20120329
  Transmission Date: 20120825
  Serious: Yes (Hospitalization)
  Sender: FDA-Public Use
  Company Number: FR-ABBOTT-12P-056-0920883-00

PATIENT
  Age: 56 Year
  Sex: Female

DRUGS (2)
  1. INVANZ [Interacting]
     Indication: HYPERTHERMIA
     Route: 058
     Dates: start: 20110812, end: 20110825
  2. DEPAKENE [Suspect]
     Indication: STATUS EPILEPTICUS
     Route: 048
     Dates: start: 20110616

REACTIONS (3)
  - MYOCLONUS [None]
  - DRUG INTERACTION [None]
  - CLONIC CONVULSION [None]
